FAERS Safety Report 19457787 (Version 1)
Quarter: 2021Q2

REPORT INFORMATION
  Report Type: Spontaneous
  Country: US (occurrence: US)
  Receive Date: 20210624
  Receipt Date: 20210624
  Transmission Date: 20210717
  Serious: No
  Sender: FDA-Public Use
  Company Number: US-PFIZER INC-2021619531

PATIENT
  Age: 48 Year

DRUGS (1)
  1. SILDENAFIL CITRATE. [Suspect]
     Active Substance: SILDENAFIL CITRATE
     Dosage: UNK

REACTIONS (5)
  - Drug ineffective [Unknown]
  - Hyperhidrosis [Unknown]
  - Heart rate increased [Unknown]
  - Hypertension [Unknown]
  - Product substitution issue [Unknown]
